FAERS Safety Report 8926720 (Version 1)
Quarter: 2012Q4

REPORT INFORMATION
  Report Type: 
  Country: US (occurrence: US)
  Receive Date: 20121127
  Receipt Date: 20121127
  Transmission Date: 20130627
  Serious: No
  Sender: FDA-Public Use
  Company Number: US-PFIZER INC-2012295296

PATIENT
  Sex: Male

DRUGS (1)
  1. ADVIL [Suspect]
     Dosage: 200 mg, UNK
     Route: 048

REACTIONS (2)
  - Incorrect dose administered [Unknown]
  - Adverse reaction [Unknown]
